FAERS Safety Report 12859482 (Version 1)
Quarter: 2016Q4

REPORT INFORMATION
  Report Type: Report from Study
  Country: US (occurrence: US)
  Receive Date: 20161018
  Receipt Date: 20161018
  Transmission Date: 20170207
  Serious: Yes (Hospitalization, Other)
  Sender: FDA-Public Use
  Company Number: US-TEVA-703247USA

PATIENT
  Sex: Male

DRUGS (2)
  1. COPAXONE [Suspect]
     Active Substance: GLATIRAMER ACETATE
     Indication: MULTIPLE SCLEROSIS
     Dosage: UNKNOWN FORM STRENGTH
     Route: 058
     Dates: start: 20140329, end: 20140407
  2. MANNITOL. [Suspect]
     Active Substance: MANNITOL
     Route: 065

REACTIONS (6)
  - Thrombosis [Unknown]
  - Adverse event [Unknown]
  - Chills [Unknown]
  - Drug hypersensitivity [Unknown]
  - Progressive multiple sclerosis [Unknown]
  - Paralysis [Recovered/Resolved]

NARRATIVE: CASE EVENT DATE: 2015
